FAERS Safety Report 9492261 (Version 1)
Quarter: 2013Q3

REPORT INFORMATION
  Report Type: Spontaneous
  Country: GB (occurrence: GB)
  Receive Date: 20130830
  Receipt Date: 20130830
  Transmission Date: 20140515
  Serious: Yes (Death)
  Sender: FDA-Public Use
  Company Number: GB-ROCHE-1268342

PATIENT
  Age: 67 Year
  Sex: Female
  Weight: 65.5 kg

DRUGS (7)
  1. RITUXIMAB [Suspect]
     Indication: RHEUMATOID ARTHRITIS
     Route: 042
     Dates: start: 20130802, end: 20130802
  2. ASPIRIN [Concomitant]
  3. BUPRENORPHIN [Concomitant]
  4. CO-CODAMOL [Concomitant]
  5. HYDROXYCHLOROQUINE [Concomitant]
  6. LOSARTAN [Concomitant]
  7. SPIRONOLACTONE [Concomitant]

REACTIONS (1)
  - Cardiac failure [Fatal]
